FAERS Safety Report 15960355 (Version 1)
Quarter: 2019Q1

REPORT INFORMATION
  Report Type: Spontaneous
  Country: US (occurrence: US)
  Receive Date: 20190214
  Receipt Date: 20190214
  Transmission Date: 20190417
  Serious: No
  Sender: FDA-Public Use
  Company Number: US-ROCHE-2226943

PATIENT
  Sex: Male

DRUGS (4)
  1. MELOXICAM. [Concomitant]
     Active Substance: MELOXICAM
  2. ERIVEDGE [Suspect]
     Active Substance: VISMODEGIB
     Indication: SKIN CANCER
     Route: 048
     Dates: start: 20181107
  3. VIBERZI [Concomitant]
     Active Substance: ELUXADOLINE
  4. PLAVIX [Concomitant]
     Active Substance: CLOPIDOGREL BISULFATE

REACTIONS (1)
  - Gastric disorder [Unknown]
